FAERS Safety Report 7413662-1 (Version None)
Quarter: 2011Q2

REPORT INFORMATION
  Report Type: 
  Country: None (occurrence: None)
  Receive Date: 20110413
  Receipt Date: 20110405
  Transmission Date: 20111010
  Serious: Yes (Other)
  Sender: FDA-Public Use
  Company Number: FR-BAYER-201022058GPV

PATIENT
  Age: 35 Year
  Sex: Female

DRUGS (1)
  1. QLAIRA [Suspect]
     Indication: CONTRACEPTION
     Dates: start: 20091015

REACTIONS (2)
  - PREGNANCY [None]
  - BLIGHTED OVUM [None]
